FAERS Safety Report 14338795 (Version 1)
Quarter: 2017Q4

REPORT INFORMATION
  Report Type: Spontaneous
  Country: US (occurrence: US)
  Receive Date: 20171229
  Receipt Date: 20171229
  Transmission Date: 20180321
  Serious: No
  Sender: FDA-Public Use
  Company Number: US-MAYNE PHARMA-2017MYN001739

PATIENT

DRUGS (8)
  1. FUROSEMIDE. [Concomitant]
     Active Substance: FUROSEMIDE
     Dosage: UNK
  2. IODINE. [Concomitant]
     Active Substance: IODINE
     Dosage: UNK
  3. DOFETILIDE. [Suspect]
     Active Substance: DOFETILIDE
     Indication: ATRIAL FIBRILLATION
     Dosage: 125 MCG, BID
     Route: 048
     Dates: start: 20160923
  4. ELIQUIS [Concomitant]
     Active Substance: APIXABAN
     Dosage: 5 MG, BID
     Route: 048
  5. LISINOPRIL. [Concomitant]
     Active Substance: LISINOPRIL
     Dosage: 20 MG, QD
  6. DOFETILIDE. [Suspect]
     Active Substance: DOFETILIDE
     Dosage: 250 MCG, BID
     Route: 048
     Dates: start: 20160923
  7. ALPHA LIPOIC ACID [Concomitant]
     Active Substance: .ALPHA.-LIPOIC ACID
     Dosage: UNK
  8. METOPROLOL. [Concomitant]
     Active Substance: METOPROLOL
     Dosage: 50 MG, QD

REACTIONS (10)
  - Drug dose omission [Unknown]
  - Headache [Recovered/Resolved]
  - Fatigue [Unknown]
  - General physical health deterioration [Unknown]
  - Stress [Unknown]
  - Emotional disorder [Unknown]
  - Ill-defined disorder [Unknown]
  - Blood pressure abnormal [Unknown]
  - Asthenia [Unknown]
  - Diarrhoea [Not Recovered/Not Resolved]

NARRATIVE: CASE EVENT DATE: 20170919
